FAERS Safety Report 5213770-X (Version None)
Quarter: 2007Q1

REPORT INFORMATION
  Report Type: 
  Country: None (occurrence: None)
  Receive Date: 20070119
  Receipt Date: 20061113
  Transmission Date: 20070707
  Serious: Yes (Hospitalization, Other)
  Sender: FDA-Public Use
  Company Number: US-PFIZER INC-2006141004

PATIENT
  Sex: Male
  Weight: 97.5 kg

DRUGS (10)
  1. ARTHROTEC [Suspect]
     Indication: ARTHRITIS
  2. VOLTAREN-XR [Suspect]
     Indication: PAIN
     Dates: start: 20060201, end: 20060601
  3. TYLENOL W/ CODEINE NO. 3 [Concomitant]
  4. VASOTEC [Concomitant]
  5. NORVASC [Concomitant]
  6. MONTELUKAST SODIUM [Concomitant]
  7. ADVAIR DISKUS 100/50 [Concomitant]
  8. ALBUTEROL [Concomitant]
  9. LAMICTAL [Concomitant]
  10. PRAVACHOL [Concomitant]

REACTIONS (5)
  - ANEURYSM [None]
  - CEREBROVASCULAR ACCIDENT [None]
  - DIARRHOEA HAEMORRHAGIC [None]
  - DRUG INEFFECTIVE [None]
  - SWELLING [None]
